FAERS Safety Report 24380268 (Version 1)
Quarter: 2024Q3

REPORT INFORMATION
  Report Type: Spontaneous
  Country: JP (occurrence: JP)
  Receive Date: 20240930
  Receipt Date: 20240930
  Transmission Date: 20241017
  Serious: Yes (Other)
  Sender: EAGLE
  Company Number: JP-EAGLE PHARMACEUTICALS, INC.-JP-2024EAG000232

PATIENT
  Age: 68 Year
  Sex: Female

DRUGS (14)
  1. BENDAMUSTINE HYDROCHLORIDE [Suspect]
     Active Substance: BENDAMUSTINE HYDROCHLORIDE
     Indication: Follicular lymphoma stage IV
     Dosage: UNK, CYCLE 1 GB THERAPY
     Route: 042
     Dates: start: 2022
  2. BENDAMUSTINE HYDROCHLORIDE [Suspect]
     Active Substance: BENDAMUSTINE HYDROCHLORIDE
     Dosage: UNK, CYCLE 2 GB THERAPY
     Route: 042
     Dates: start: 2022
  3. BENDAMUSTINE HYDROCHLORIDE [Suspect]
     Active Substance: BENDAMUSTINE HYDROCHLORIDE
     Dosage: UNK, CYCLE 3 GB THERAPY
     Route: 042
     Dates: start: 2022
  4. BENDAMUSTINE HYDROCHLORIDE [Suspect]
     Active Substance: BENDAMUSTINE HYDROCHLORIDE
     Dosage: UNK, CYCLE 4 GB THERAPY
     Route: 042
     Dates: start: 2022
  5. BENDAMUSTINE HYDROCHLORIDE [Suspect]
     Active Substance: BENDAMUSTINE HYDROCHLORIDE
     Dosage: UNK, CYCLE 5 GB THERAPY
     Route: 042
     Dates: start: 2022
  6. BENDAMUSTINE HYDROCHLORIDE [Suspect]
     Active Substance: BENDAMUSTINE HYDROCHLORIDE
     Dosage: UNK, CYCLE 6 GB THERAPY
     Route: 042
     Dates: start: 2022
  7. OBINUTUZUMAB [Concomitant]
     Active Substance: OBINUTUZUMAB
     Indication: Follicular lymphoma stage IV
     Dosage: UNK, CYCLE 1 GB THERAPY
     Route: 042
     Dates: start: 2022
  8. OBINUTUZUMAB [Concomitant]
     Active Substance: OBINUTUZUMAB
     Dosage: UNK, CYCLE 2 GB THERAPY
     Route: 042
     Dates: start: 2022
  9. OBINUTUZUMAB [Concomitant]
     Active Substance: OBINUTUZUMAB
     Dosage: UNK, CYCLE 3 GB THERAPY
     Route: 042
     Dates: start: 2022
  10. OBINUTUZUMAB [Concomitant]
     Active Substance: OBINUTUZUMAB
     Dosage: UNK, CYCLE 4 GB THERAPY
     Route: 042
     Dates: start: 2022
  11. OBINUTUZUMAB [Concomitant]
     Active Substance: OBINUTUZUMAB
     Dosage: UNK, CYCLE 5 GB THERAPY
     Route: 042
     Dates: start: 2022
  12. OBINUTUZUMAB [Concomitant]
     Active Substance: OBINUTUZUMAB
     Dosage: UNK, CYCLE 6 GB THERAPY
     Route: 042
     Dates: start: 2022
  13. OBINUTUZUMAB [Concomitant]
     Active Substance: OBINUTUZUMAB
     Dosage: UNK, MAINTENANCE THERAPY
     Route: 042
     Dates: start: 2022
  14. OBINUTUZUMAB [Concomitant]
     Active Substance: OBINUTUZUMAB
     Dosage: UNK, MAINTENANCE THERAPY
     Route: 042
     Dates: start: 202301

REACTIONS (1)
  - COVID-19 pneumonia [Recovering/Resolving]

NARRATIVE: CASE EVENT DATE: 20230101
